FAERS Safety Report 11940584 (Version 1)
Quarter: 2016Q1

REPORT INFORMATION
  Report Type: Spontaneous
  Country: US (occurrence: US)
  Receive Date: 20160122
  Receipt Date: 20160122
  Transmission Date: 20160526
  Serious: Yes (Hospitalization)
  Sender: FDA-Public Use
  Company Number: US-DYAX CORP.-2015DX000349

PATIENT
  Sex: Female
  Weight: 67.19 kg

DRUGS (5)
  1. KALBITOR [Suspect]
     Active Substance: ECALLANTIDE
     Route: 065
     Dates: start: 2014
  2. KALBITOR [Suspect]
     Active Substance: ECALLANTIDE
     Indication: HEREDITARY ANGIOEDEMA
     Route: 065
     Dates: start: 201507, end: 201507
  3. NORETHINDRONE ACETATE. [Concomitant]
     Active Substance: NORETHINDRONE ACETATE
     Indication: PRODUCT USED FOR UNKNOWN INDICATION
     Route: 048
  4. ADDERALL [Concomitant]
     Active Substance: AMPHETAMINE ASPARTATE\AMPHETAMINE SULFATE\DEXTROAMPHETAMINE SACCHARATE\DEXTROAMPHETAMINE SULFATE
     Indication: ATTENTION DEFICIT/HYPERACTIVITY DISORDER
     Route: 048
  5. KLONOPIN [Concomitant]
     Active Substance: CLONAZEPAM
     Indication: ANXIETY
     Route: 048

REACTIONS (13)
  - Forearm fracture [Not Recovered/Not Resolved]
  - Drug administration error [Recovered/Resolved]
  - Pain [Recovered/Resolved]
  - Joint injury [Not Recovered/Not Resolved]
  - Hereditary angioedema [Recovered/Resolved]
  - Nephrolithiasis [Recovered/Resolved]
  - Fall [Recovered/Resolved]
  - Conversion disorder [Unknown]
  - Joint dislocation [Not Recovered/Not Resolved]
  - Syncope [Recovered/Resolved]
  - Arthropod sting [Recovered/Resolved]
  - Vomiting [Recovered/Resolved]
  - Memory impairment [Unknown]

NARRATIVE: CASE EVENT DATE: 2015
